FAERS Safety Report 4836257-2 (Version None)
Quarter: 2005Q4

REPORT INFORMATION
  Report Type: 
  Country: None (occurrence: None)
  Receive Date: 20051118
  Receipt Date: 20051107
  Transmission Date: 20060501
  Serious: Yes (Hospitalization)
  Sender: FDA-Public Use
  Company Number: MEDI-0003764

PATIENT
  Age: 85 Year
  Sex: Female

DRUGS (17)
  1. ETHYOL [Suspect]
     Indication: CHEMOTHERAPY
     Dosage: SUBCUTANEOUS
     Route: 058
     Dates: start: 20050915, end: 20051020
  2. ETHYOL [Suspect]
     Indication: RADIOTHERAPY
     Dosage: SUBCUTANEOUS
     Route: 058
     Dates: start: 20050915, end: 20051020
  3. RADIATION THERAPY [Concomitant]
  4. CHEMOTHERAPY [Concomitant]
  5. CAPTOPRIL [Concomitant]
  6. FOSAMAX [Concomitant]
  7. PHYTONADIONE [Concomitant]
  8. CALCIUM (CALCIUM) [Concomitant]
  9. MULTIVITAMIN [Concomitant]
  10. COMPAZINE [Concomitant]
  11. KYTRIL [Concomitant]
  12. IMODIUM [Concomitant]
  13. HYDROCHLOROTHIAZIDE [Concomitant]
  14. OCUVITE (ASCORBIC ACID, TOCOPHEROL, RETINOL) [Concomitant]
  15. NEULASTA [Concomitant]
  16. PROCRIT [Concomitant]
  17. AMBIEN [Concomitant]

REACTIONS (8)
  - ATELECTASIS [None]
  - CHRONIC OBSTRUCTIVE PULMONARY DISEASE [None]
  - DEHYDRATION [None]
  - DYSPNOEA [None]
  - HYPOKALAEMIA [None]
  - LUNG INFILTRATION [None]
  - PLEURAL EFFUSION [None]
  - PULMONARY EMBOLISM [None]
